FAERS Safety Report 25191591 (Version 1)
Quarter: 2025Q2

REPORT INFORMATION
  Report Type: Spontaneous
  Country: US (occurrence: None)
  Receive Date: 20250411
  Receipt Date: 20250411
  Transmission Date: 20250716
  Serious: Yes (Other)
  Sender: FDA-CTU
  Company Number: None

PATIENT
  Age: 24 Year
  Sex: Female
  Weight: 47.63 kg

DRUGS (2)
  1. BUPRENORPHINE\NALOXONE [Suspect]
     Active Substance: BUPRENORPHINE\NALOXONE
     Indication: Drug abuse
     Dosage: FREQUENCY : TWICE A DAY;?
     Route: 060
  2. BUPRENORPHINE\NALOXONE [Suspect]
     Active Substance: BUPRENORPHINE\NALOXONE
     Indication: Drug dependence

REACTIONS (2)
  - Vomiting [None]
  - Migraine [None]

NARRATIVE: CASE EVENT DATE: 20200501
